FAERS Safety Report 8544771 (Version 4)
Quarter: 2012Q4

REPORT INFORMATION
  Report Type: 
  Country: FR (occurrence: FR)
  Receive Date: 20120503
  Receipt Date: 20120913
  Transmission Date: 20130627
  Serious: Yes (Death)
  Sender: FDA-Public Use
  Company Number: FR-GLAXOSMITHKLINE-B0797689A

PATIENT
  Age: 60 None
  Sex: Male

DRUGS (4)
  1. AVANDAMET [Suspect]
     Indication: TYPE 2 DIABETES MELLITUS
     Route: 048
     Dates: start: 20061024, end: 20100922
  2. KARDEGIC [Concomitant]
     Indication: PRODUCT USED FOR UNKNOWN INDICATION
     Route: 048
     Dates: start: 2000, end: 2008
  3. ANTI-HYPERTENSIVE [Concomitant]
     Indication: HYPERTENSION
     Dates: start: 20070220
  4. STATINES [Concomitant]
     Indication: HYPERCHOLESTEROLAEMIA
     Dates: start: 20070220

REACTIONS (9)
  - Death [Fatal]
  - Malaise [Not Recovered/Not Resolved]
  - Fall [Unknown]
  - Loss of consciousness [Not Recovered/Not Resolved]
  - Heart rate irregular [Unknown]
  - Swelling face [Unknown]
  - Abdominal distension [Unknown]
  - Eye swelling [Unknown]
  - Fatigue [Unknown]
